FAERS Safety Report 11115814 (Version 1)
Quarter: 2015Q2

REPORT INFORMATION
  Report Type: Spontaneous
  Country: None (occurrence: None)
  Receive Date: 20150514
  Receipt Date: 20150514
  Transmission Date: 20150821
  Serious: No
  Sender: FDA-Public Use
  Company Number: None

PATIENT
  Age: 54 Year
  Sex: Male

DRUGS (1)
  1. COPAXONE [Suspect]
     Active Substance: GLATIRAMER ACETATE

REACTIONS (8)
  - Pruritus generalised [None]
  - Injection site reaction [None]
  - Injection site pain [None]
  - Injection site urticaria [None]
  - Injection site pruritus [None]
  - Needle issue [None]
  - Injection site swelling [None]
  - Injection site erythema [None]
